FAERS Safety Report 10027373 (Version 1)
Quarter: 2014Q1

REPORT INFORMATION
  Report Type: Spontaneous
  Country: SG (occurrence: SG)
  Receive Date: 20140321
  Receipt Date: 20140321
  Transmission Date: 20141002
  Serious: Yes (Death, Life-Threatening, Hospitalization)
  Sender: FDA-Public Use
  Company Number: SG-CELGENEUS-141-21880-14031518

PATIENT
  Age: 71 Year
  Sex: Female
  Weight: 39.8 kg

DRUGS (65)
  1. REVLIMID [Suspect]
     Indication: PLASMA CELL MYELOMA
     Dosage: 15 MILLIGRAM
     Route: 048
     Dates: start: 20130121
  2. REVLIMID [Suspect]
     Dosage: 15 MILLIGRAM
     Route: 048
     Dates: start: 20130311, end: 20130409
  3. MLN9708 [Suspect]
     Indication: PLASMA CELL MYELOMA
     Dosage: 4 MILLIGRAM
     Route: 048
     Dates: start: 20130121, end: 20130409
  4. MLN9708 [Suspect]
     Route: 048
     Dates: start: 20130320
  5. DEXAMETHASONE [Suspect]
     Indication: PLASMA CELL MYELOMA
     Dosage: 40 MILLIGRAM
     Route: 048
     Dates: start: 20130121, end: 20130403
  6. DEXAMETHASONE [Suspect]
     Route: 048
     Dates: end: 20130409
  7. ASPIRINE [Concomitant]
     Indication: PRODUCT USED FOR UNKNOWN INDICATION
     Route: 048
     Dates: start: 20121228
  8. ACICLOVIR [Concomitant]
     Indication: PRODUCT USED FOR UNKNOWN INDICATION
     Dosage: 800 MILLIGRAM
     Route: 048
     Dates: start: 20121228
  9. CO-TRIMOXAZOLE [Concomitant]
     Indication: PRODUCT USED FOR UNKNOWN INDICATION
     Route: 048
     Dates: start: 20121228
  10. CO-TRIMOXAZOLE [Concomitant]
     Route: 048
     Dates: start: 20130406
  11. CO-TRIMOXAZOLE [Concomitant]
     Route: 048
     Dates: start: 20130121, end: 20130406
  12. OMEPRAZOLE [Concomitant]
     Indication: PRODUCT USED FOR UNKNOWN INDICATION
     Route: 048
     Dates: start: 20121228
  13. OMEPRAZOLE [Concomitant]
     Route: 041
     Dates: start: 20130406, end: 20130406
  14. OMEPRAZOLE [Concomitant]
     Dosage: 80 MILLIGRAM
     Route: 041
     Dates: start: 20130406, end: 20130408
  15. SODIUM CHLORIDE [Concomitant]
     Indication: PRODUCT USED FOR UNKNOWN INDICATION
     Route: 047
     Dates: start: 20121228
  16. SODIUM CHLORIDE [Concomitant]
     Route: 041
     Dates: start: 20130405, end: 20130405
  17. SODIUM CHLORIDE [Concomitant]
     Route: 041
     Dates: start: 20130405, end: 20130407
  18. LOPRAMIDE [Concomitant]
     Indication: PRODUCT USED FOR UNKNOWN INDICATION
     Route: 048
     Dates: start: 20130228
  19. CHARCOAL [Concomitant]
     Indication: PRODUCT USED FOR UNKNOWN INDICATION
     Route: 048
     Dates: start: 20130228
  20. ALBUMIN [Concomitant]
     Indication: PRODUCT USED FOR UNKNOWN INDICATION
     Route: 065
     Dates: start: 20130409, end: 20130410
  21. ALBUMIN [Concomitant]
     Route: 065
     Dates: start: 20130415, end: 20130415
  22. ALBUMIN [Concomitant]
     Route: 065
     Dates: start: 20130414, end: 20130414
  23. NYSTATIN [Concomitant]
     Indication: PRODUCT USED FOR UNKNOWN INDICATION
     Dosage: 3 DROPS
     Route: 048
     Dates: start: 20130406, end: 20130409
  24. POTASSIUM CHLORIDE [Concomitant]
     Indication: PRODUCT USED FOR UNKNOWN INDICATION
     Route: 041
     Dates: start: 20130414, end: 20130415
  25. POTASSIUM CHLORIDE [Concomitant]
     Route: 041
     Dates: start: 20130405, end: 20130405
  26. POTASSIUM CHLORIDE [Concomitant]
     Dosage: 1200 MILLIGRAM
     Route: 048
     Dates: start: 20130405, end: 20130406
  27. POTASSIUM CHLORIDE [Concomitant]
     Route: 048
     Dates: start: 20130405, end: 20130405
  28. FUROSEMIDE [Concomitant]
     Indication: PRODUCT USED FOR UNKNOWN INDICATION
     Dosage: 80 MILLIGRAM
     Route: 041
     Dates: start: 20130409, end: 20130409
  29. IBUPROFEN [Concomitant]
     Indication: PRODUCT USED FOR UNKNOWN INDICATION
     Dosage: MILLIGRAM
     Route: 048
     Dates: start: 20130422, end: 20130424
  30. PROPASS PROTEIN [Concomitant]
     Indication: PRODUCT USED FOR UNKNOWN INDICATION
     Dosage: 5 SCOOPS
     Route: 048
     Dates: start: 20130416, end: 20130424
  31. COLOPLAST [Concomitant]
     Indication: PRODUCT USED FOR UNKNOWN INDICATION
     Dosage: 1 APPLICATION
     Route: 061
     Dates: start: 20130416, end: 20130424
  32. MAGNESIUM SULFATE [Concomitant]
     Indication: PRODUCT USED FOR UNKNOWN INDICATION
     Route: 041
     Dates: start: 20130414, end: 20130414
  33. MAGNESIUM SULFATE [Concomitant]
     Route: 041
     Dates: start: 20130415, end: 20130415
  34. MAGNESIUM SULFATE [Concomitant]
     Route: 041
     Dates: start: 20130418, end: 20130418
  35. MAGNESIUM SULFATE [Concomitant]
     Dosage: 1200 MILLIGRAM
     Dates: start: 20130320
  36. POTASSIUM DIHYDROGEN PHOSPHATE [Concomitant]
     Indication: PRODUCT USED FOR UNKNOWN INDICATION
     Route: 041
     Dates: start: 20130414, end: 20130415
  37. POTASSIUM DIHYDROGEN PHOSPHATE [Concomitant]
     Route: 041
     Dates: start: 20130418, end: 20130418
  38. GELAFUNDIN [Concomitant]
     Indication: PRODUCT USED FOR UNKNOWN INDICATION
     Dosage: 250 MILLILITER
     Route: 041
     Dates: start: 20130414, end: 20130414
  39. GELAFUNDIN [Concomitant]
     Route: 041
     Dates: start: 20130415, end: 20130416
  40. GELAFUNDIN [Concomitant]
     Route: 041
     Dates: start: 20130417, end: 20130417
  41. GELAFUNDIN [Concomitant]
     Route: 041
     Dates: start: 20130406, end: 20130406
  42. DEXTROSE [Concomitant]
     Indication: PRODUCT USED FOR UNKNOWN INDICATION
     Dosage: 1 LITERS
     Route: 041
     Dates: start: 20130416, end: 20130416
  43. DEXTROSE [Concomitant]
     Dosage: 850 MILLILITER
     Route: 041
     Dates: start: 20130416, end: 20130418
  44. FENTANYL [Concomitant]
     Indication: PRODUCT USED FOR UNKNOWN INDICATION
     Route: 041
     Dates: start: 20130418, end: 20130418
  45. FENTANYL [Concomitant]
     Route: 041
     Dates: start: 20130418, end: 20130419
  46. FENTANYL [Concomitant]
     Route: 041
     Dates: start: 20130419, end: 20130424
  47. FENTANYL [Concomitant]
     Route: 041
     Dates: start: 20130424, end: 20130424
  48. METOCLOPRAMIDE [Concomitant]
     Indication: PRODUCT USED FOR UNKNOWN INDICATION
     Route: 048
     Dates: start: 20130405, end: 20130407
  49. METOCLOPRAMIDE [Concomitant]
     Route: 048
     Dates: start: 20130420, end: 20130424
  50. ALLOPURINOL [Concomitant]
     Indication: PRODUCT USED FOR UNKNOWN INDICATION
     Dosage: 200 MILLIGRAM
     Route: 048
     Dates: start: 20130406, end: 20130406
  51. ALLOPURINOL [Concomitant]
     Route: 048
     Dates: start: 20130406, end: 20130409
  52. SALBUTAMOL [Concomitant]
     Indication: PRODUCT USED FOR UNKNOWN INDICATION
     Route: 055
     Dates: start: 20130406, end: 20130407
  53. SODIUM BICARBONATE [Concomitant]
     Indication: PRODUCT USED FOR UNKNOWN INDICATION
     Route: 048
     Dates: start: 20130407, end: 20130407
  54. HEPARINOID [Concomitant]
     Indication: PRODUCT USED FOR UNKNOWN INDICATION
     Route: 061
     Dates: start: 20130413, end: 20130424
  55. PARACETAMOL [Concomitant]
     Indication: PRODUCT USED FOR UNKNOWN INDICATION
     Route: 048
     Dates: start: 20130413, end: 20130424
  56. PARACETAMOL [Concomitant]
     Route: 048
     Dates: start: 20130227
  57. ESOMEPRAZOLE [Concomitant]
     Indication: PRODUCT USED FOR UNKNOWN INDICATION
     Route: 048
     Dates: start: 20130419, end: 20130419
  58. ESOMEPRAZOLE [Concomitant]
     Route: 048
     Dates: start: 20130419, end: 20130421
  59. ESOMEPRAZOLE [Concomitant]
     Route: 048
     Dates: start: 20130421, end: 20130424
  60. MIDAZOLAM [Concomitant]
     Indication: PRODUCT USED FOR UNKNOWN INDICATION
     Route: 041
     Dates: start: 20130413, end: 20130423
  61. CEFEPIME [Concomitant]
     Indication: PRODUCT USED FOR UNKNOWN INDICATION
     Route: 041
     Dates: start: 20130411, end: 20130411
  62. LACTOBACILLUS [Concomitant]
     Indication: PRODUCT USED FOR UNKNOWN INDICATION
     Dosage: 2 DOSAGE FORMS
     Route: 048
     Dates: start: 20130422, end: 20130424
  63. ZOLPIDEM TARTRATE [Concomitant]
     Indication: PRODUCT USED FOR UNKNOWN INDICATION
     Route: 048
     Dates: start: 20130320
  64. TAZOCIN [Concomitant]
     Indication: PRODUCT USED FOR UNKNOWN INDICATION
     Route: 041
     Dates: start: 20130406, end: 20130406
  65. MOXIFLOXACIN [Concomitant]
     Indication: PRODUCT USED FOR UNKNOWN INDICATION
     Dosage: 2.25 GRAM
     Route: 041
     Dates: start: 20130410, end: 20130411

REACTIONS (3)
  - Campylobacter gastroenteritis [Recovered/Resolved with Sequelae]
  - Renal failure acute [Not Recovered/Not Resolved]
  - Pneumonia influenzal [Fatal]
